FAERS Safety Report 7114425-7 (Version None)
Quarter: 2010Q4

REPORT INFORMATION
  Report Type: 
  Country: None (occurrence: None)
  Receive Date: 20101119
  Receipt Date: 20101105
  Transmission Date: 20110411
  Serious: Yes (Life-Threatening, Hospitalization)
  Sender: FDA-Public Use
  Company Number: DK-PFIZER INC-2010045225

PATIENT
  Age: 62 Year
  Sex: Male

DRUGS (9)
  1. IBUPROFEN [Suspect]
     Indication: PAIN
     Dosage: 600 MG, IN 1 AS NEEDED
     Route: 048
     Dates: start: 20090701, end: 20100111
  2. OLMETEC [Suspect]
     Indication: HYPERTENSION
     Dosage: 40 MG, 1X/DAY
     Route: 048
     Dates: start: 20080101, end: 20100111
  3. EVEROLIMUS [Suspect]
     Indication: RENAL CANCER
     Dosage: 10 MG
     Route: 048
     Dates: start: 20091117, end: 20100108
  4. ZOPICLONE [Concomitant]
     Indication: INSOMNIA
     Dosage: 7.5 - 15 MG, 1X/DAY
     Route: 048
  5. CENTYL [Concomitant]
     Indication: HYPERTENSION
     Dosage: 2.5 MG, 1X/DAY
     Route: 048
     Dates: start: 20100115
  6. PANTOPRAZOLE [Concomitant]
     Indication: PRODUCT USED FOR UNKNOWN INDICATION
     Dosage: 40 MG, 1X/DAY
     Route: 048
  7. OXYCONTIN [Concomitant]
     Indication: PAIN
     Dosage: 10 MG, AS NEEDED
     Route: 048
  8. OXYNORM [Concomitant]
     Indication: PAIN
     Dosage: 5 MG, AS NEEDED
     Route: 048
  9. ALOPAM [Concomitant]
     Indication: SEDATIVE THERAPY
     Dosage: 10 MG, AS NEEDED
     Route: 048

REACTIONS (3)
  - DRUG INTERACTION [None]
  - RASH [None]
  - RENAL FAILURE [None]
